FAERS Safety Report 9520880 (Version 1)
Quarter: 2013Q3

REPORT INFORMATION
  Report Type: Spontaneous
  Country: CH (occurrence: CH)
  Receive Date: 20130913
  Receipt Date: 20130913
  Transmission Date: 20140515
  Serious: Yes (Hospitalization)
  Sender: FDA-Public Use
  Company Number: CH-ASTRAZENECA-2013SE67783

PATIENT
  Age: 76 Year
  Sex: Female
  Weight: 58.2 kg

DRUGS (6)
  1. NEXIUM [Suspect]
     Indication: GASTRITIS
     Route: 048
     Dates: end: 200702
  2. FLUDEX [Suspect]
     Indication: ESSENTIAL HYPERTENSION
     Route: 048
     Dates: end: 200702
  3. ISOKET [Suspect]
     Indication: MYOCARDIAL ISCHAEMIA
     Route: 048
     Dates: end: 200702
  4. PREDNISONE [Concomitant]
     Indication: CUTANEOUS LUPUS ERYTHEMATOSUS
     Route: 048
     Dates: start: 200609
  5. PLAQUENIL [Concomitant]
     Indication: CUTANEOUS LUPUS ERYTHEMATOSUS
     Route: 048
     Dates: start: 200609, end: 200702
  6. OXAZEPAM [Concomitant]
     Indication: ANXIETY DISORDER
     Route: 048

REACTIONS (1)
  - Acute cutaneous lupus erythematosus [Not Recovered/Not Resolved]
